FAERS Safety Report 7603826-6 (Version None)
Quarter: 2011Q3

REPORT INFORMATION
  Report Type: 
  Country: None (occurrence: None)
  Receive Date: 20110712
  Receipt Date: 20110704
  Transmission Date: 20111222
  Serious: Yes (Other)
  Sender: FDA-Public Use
  Company Number: GB-GLAXOSMITHKLINE-B0730833A

PATIENT
  Sex: Male

DRUGS (2)
  1. HEPARIN [Concomitant]
  2. MALARONE [Suspect]
     Indication: MALARIA PROPHYLAXIS
     Dosage: 1TAB PER DAY
     Route: 048
     Dates: start: 20100215, end: 20100305

REACTIONS (1)
  - DEAFNESS NEUROSENSORY [None]
